FAERS Safety Report 7222965-5 (Version None)
Quarter: 2011Q1

REPORT INFORMATION
  Report Type: 
  Country: None (occurrence: None)
  Receive Date: 20110112
  Receipt Date: 20101126
  Transmission Date: 20110831
  Serious: Yes (Other)
  Sender: FDA-Public Use
  Company Number: PHHY2010AU80690

PATIENT
  Sex: Female

DRUGS (1)
  1. STI571/CGP57148B [Suspect]
     Indication: CHRONIC MYELOID LEUKAEMIA
     Dosage: 600 MG, UNK
     Route: 048
     Dates: start: 20101001

REACTIONS (4)
  - ANAEMIA [None]
  - LOWER RESPIRATORY TRACT INFECTION [None]
  - FATIGUE [None]
  - COUGH [None]
